FAERS Safety Report 21325092 (Version 1)
Quarter: 2022Q3

REPORT INFORMATION
  Report Type: Spontaneous
  Country: KR (occurrence: KR)
  Receive Date: 20220912
  Receipt Date: 20220912
  Transmission Date: 20221027
  Serious: Yes (Hospitalization)
  Sender: FDA-Public Use
  Company Number: KR-SCALL-2022-KR-000056

PATIENT
  Age: 74 Year
  Sex: Male

DRUGS (3)
  1. AVODART [Suspect]
     Active Substance: DUTASTERIDE
     Indication: Prostatomegaly
     Dosage: 1 DF, QD: 1 DAY
     Route: 065
     Dates: end: 20191122
  2. HARNAL [Concomitant]
     Active Substance: TAMSULOSIN HYDROCHLORIDE
     Route: 065
  3. MYTONIN [Concomitant]
     Route: 065

REACTIONS (4)
  - Testicular pain [Not Recovered/Not Resolved]
  - Testicular swelling [Not Recovered/Not Resolved]
  - Testicular disorder [Unknown]
  - Therapy cessation [Unknown]

NARRATIVE: CASE EVENT DATE: 20191122
